FAERS Safety Report 20673192 (Version 20)
Quarter: 2022Q3

REPORT INFORMATION
  Report Type: Report from Study
  Country: NO (occurrence: None)
  Receive Date: 20220405
  Receipt Date: 20220909
  Transmission Date: 20221026
  Serious: Yes (Hospitalization)
  Sender: FDA-Public Use
  Company Number: NO-Eisai Medical Research-EC-2022-112167

PATIENT
  Age: 64 Year
  Sex: Male
  Weight: 68.2 kg

DRUGS (18)
  1. LENVATINIB [Suspect]
     Active Substance: LENVATINIB
     Indication: Clear cell renal cell carcinoma
     Route: 048
     Dates: start: 20211004, end: 20220329
  2. LENVATINIB [Suspect]
     Active Substance: LENVATINIB
     Route: 048
     Dates: start: 20220504, end: 20220519
  3. LENVATINIB [Suspect]
     Active Substance: LENVATINIB
     Route: 048
     Dates: start: 20220525, end: 20220614
  4. LENVATINIB [Suspect]
     Active Substance: LENVATINIB
     Route: 048
     Dates: start: 20220621
  5. PEMBROLIZUMAB [Suspect]
     Active Substance: PEMBROLIZUMAB
     Indication: Clear cell renal cell carcinoma
     Route: 041
     Dates: start: 20211004, end: 20220208
  6. PEMBROLIZUMAB [Suspect]
     Active Substance: PEMBROLIZUMAB
     Route: 041
     Dates: start: 20220322, end: 20220322
  7. PEMBROLIZUMAB [Suspect]
     Active Substance: PEMBROLIZUMAB
     Route: 041
     Dates: start: 20220504, end: 20220504
  8. PEMBROLIZUMAB [Suspect]
     Active Substance: PEMBROLIZUMAB
     Route: 041
     Dates: start: 20220621
  9. BELZUTIFAN [Suspect]
     Active Substance: BELZUTIFAN
     Indication: Clear cell renal cell carcinoma
     Route: 048
     Dates: start: 20211004, end: 20220329
  10. BELZUTIFAN [Suspect]
     Active Substance: BELZUTIFAN
     Route: 048
     Dates: start: 20220504, end: 20220519
  11. BELZUTIFAN [Suspect]
     Active Substance: BELZUTIFAN
     Route: 048
     Dates: start: 20220525, end: 20220614
  12. BELZUTIFAN [Suspect]
     Active Substance: BELZUTIFAN
     Route: 048
     Dates: start: 20220621
  13. DICLOXACILLIN [Suspect]
     Active Substance: DICLOXACILLIN
     Indication: Urinary tract infection
     Route: 048
     Dates: start: 20220603, end: 20220607
  14. TITRALAC [Concomitant]
     Active Substance: CALCIUM CARBONATE
     Dates: start: 201801
  15. PANTOPRAZOLE [Concomitant]
     Active Substance: PANTOPRAZOLE
     Dates: start: 20201105
  16. CIPRALEX [Concomitant]
     Active Substance: ESCITALOPRAM OXALATE
     Dates: start: 20210826
  17. OXAZEPAM [Concomitant]
     Active Substance: OXAZEPAM
     Dates: start: 20210903
  18. CANDESARTAN [Concomitant]
     Active Substance: CANDESARTAN
     Dates: start: 20211115, end: 20220313

REACTIONS (4)
  - Colitis [Recovered/Resolved]
  - Diarrhoea [Recovered/Resolved]
  - Urinary tract infection [Recovered/Resolved]
  - Anaemia [Recovered/Resolved]

NARRATIVE: CASE EVENT DATE: 20220324
